FAERS Safety Report 14455323 (Version 1)
Quarter: 2018Q1

REPORT INFORMATION
  Report Type: Report from Study
  Country: ES (occurrence: ES)
  Receive Date: 20180130
  Receipt Date: 20180130
  Transmission Date: 20180509
  Serious: Yes (Other)
  Sender: FDA-Public Use
  Company Number: ES-TEVA-2018-ES-849270

PATIENT
  Age: 6 Year
  Sex: Female

DRUGS (3)
  1. PARACETAMOL [Concomitant]
     Active Substance: ACETAMINOPHEN
     Dosage: 500 MG/8H
     Route: 048
     Dates: start: 20170326
  2. KEPPRA 300 [Concomitant]
     Indication: CONVULSION PROPHYLAXIS
     Dosage: PROFILAXIS C CONVULSIVAS
     Route: 048
     Dates: start: 20170326
  3. AMOXICILINA CLAVULANICO 400 [Suspect]
     Active Substance: AMOXICILLIN\CLAVULANIC ACID
     Indication: ANTIBIOTIC PROPHYLAXIS
     Dosage: 3 DOSAGE FORMS DAILY; C/8H
     Route: 048
     Dates: start: 20170326, end: 20170403

REACTIONS (1)
  - Hypertransaminasaemia [Recovered/Resolved]

NARRATIVE: CASE EVENT DATE: 20170329
